FAERS Safety Report 7101564-X (Version None)
Quarter: 2010Q4

REPORT INFORMATION
  Report Type: 
  Country: None (occurrence: None)
  Receive Date: 20101115
  Receipt Date: 20101111
  Transmission Date: 20110411
  Serious: Yes (Other)
  Sender: FDA-Public Use
  Company Number: US-PFIZER INC-2010125596

PATIENT
  Sex: Female
  Weight: 89 kg

DRUGS (16)
  1. IBUPROFEN [Suspect]
     Indication: OSTEOARTHRITIS
     Dosage: UNK
     Route: 048
     Dates: start: 20070627, end: 20100116
  2. NAPROXEN [Suspect]
     Indication: OSTEOARTHRITIS
     Dosage: UNK
     Route: 048
     Dates: start: 20070627, end: 20100116
  3. BLINDED *NO SUBJECT DRUG [Suspect]
     Indication: OSTEOARTHRITIS
     Dosage: UNK
     Route: 048
     Dates: start: 20070627, end: 20100116
  4. BLINDED *PLACEBO [Suspect]
     Indication: OSTEOARTHRITIS
     Dosage: UNK
     Route: 048
     Dates: start: 20070627, end: 20100116
  5. CELECOXIB [Suspect]
     Indication: OSTEOARTHRITIS
     Dosage: UNK
     Route: 048
     Dates: start: 20070627, end: 20100116
  6. IBUPROFEN [Suspect]
     Dosage: UNK
     Route: 048
     Dates: start: 20070627, end: 20100116
  7. NAPROXEN [Suspect]
     Dosage: UNK
     Route: 048
     Dates: start: 20070627, end: 20100116
  8. IBUPROFEN [Suspect]
     Indication: RHEUMATOID ARTHRITIS
     Dosage: UNK
     Dates: start: 20100321
  9. NAPROXEN [Suspect]
     Indication: RHEUMATOID ARTHRITIS
     Dosage: UNK
     Dates: start: 20100321
  10. BLINDED *NO SUBJECT DRUG [Suspect]
     Indication: RHEUMATOID ARTHRITIS
     Dosage: UNK
     Dates: start: 20100321
  11. BLINDED *PLACEBO [Suspect]
     Indication: RHEUMATOID ARTHRITIS
     Dosage: UNK
     Dates: start: 20100321
  12. CELECOXIB [Suspect]
     Indication: RHEUMATOID ARTHRITIS
     Dosage: UNK
     Dates: start: 20100321
  13. IBUPROFEN [Suspect]
     Dosage: UNK
     Dates: start: 20100321
  14. NAPROXEN [Suspect]
     Dosage: UNK
     Dates: start: 20100321
  15. NEXIUM [Concomitant]
     Indication: PROPHYLAXIS
     Dosage: 40 MG, 1X/DAY
     Route: 048
     Dates: start: 20070627, end: 20100116
  16. NEXIUM [Concomitant]
     Dosage: UNK
     Dates: start: 20100321

REACTIONS (1)
  - OBESITY [None]
